FAERS Safety Report 16516073 (Version 3)
Quarter: 2019Q3

REPORT INFORMATION
  Report Type: Spontaneous
  Country: US (occurrence: US)
  Receive Date: 20190702
  Receipt Date: 20190813
  Transmission Date: 20191004
  Serious: No
  Sender: FDA-Public Use
  Company Number: US-PFIZER INC-2019275397

PATIENT
  Age: 52 Year
  Sex: Female
  Weight: 54.43 kg

DRUGS (3)
  1. CHANTIX [Suspect]
     Active Substance: VARENICLINE TARTRATE
     Indication: SMOKING CESSATION THERAPY
     Dosage: 0.5 MG, UNK
     Route: 048
     Dates: start: 20190620, end: 20190625
  2. CHANTIX [Suspect]
     Active Substance: VARENICLINE TARTRATE
     Dosage: 0.5 MG, 2X/DAY
     Route: 048
     Dates: start: 201906
  3. CHANTIX [Suspect]
     Active Substance: VARENICLINE TARTRATE
     Dosage: 0.5 MG, DAILY
     Route: 048
     Dates: start: 201906

REACTIONS (9)
  - Lip swelling [Unknown]
  - Oral discomfort [Not Recovered/Not Resolved]
  - Ageusia [Unknown]
  - Stomatitis [Unknown]
  - Mouth swelling [Unknown]
  - Glossodynia [Unknown]
  - Tongue discomfort [Unknown]
  - Gingival swelling [Unknown]
  - Swollen tongue [Unknown]
